FAERS Safety Report 17212019 (Version 1)
Quarter: 2019Q4

REPORT INFORMATION
  Report Type: Spontaneous
  Country: US (occurrence: US)
  Receive Date: 20191230
  Receipt Date: 20191230
  Transmission Date: 20200122
  Serious: No
  Sender: FDA-Public Use
  Company Number: US-ALLERGAN-1940873US

PATIENT
  Age: 47 Year
  Sex: Male
  Weight: 69.39 kg

DRUGS (7)
  1. WELLBUTRIN [Interacting]
     Active Substance: BUPROPION HYDROCHLORIDE
     Indication: ATTENTION DEFICIT/HYPERACTIVITY DISORDER
     Dosage: 150 MG, QD
     Route: 048
     Dates: start: 20120214, end: 20190724
  2. MULTIVITAMIN [Concomitant]
     Active Substance: VITAMINS
     Indication: SUPPLEMENTATION THERAPY
     Dosage: UNK
  3. WELLBUTRIN [Interacting]
     Active Substance: BUPROPION HYDROCHLORIDE
     Indication: AUTISM SPECTRUM DISORDER
  4. BYSTOLIC [Interacting]
     Active Substance: NEBIVOLOL HYDROCHLORIDE
     Dosage: 5 MG, UNKNOWN
     Route: 048
     Dates: start: 20120210, end: 2019
  5. STRATTERA [Concomitant]
     Active Substance: ATOMOXETINE HYDROCHLORIDE
     Indication: ATTENTION DEFICIT/HYPERACTIVITY DISORDER
     Dosage: START DOSE: 20 MG/ENDING DOSE 80MG
     Route: 048
     Dates: start: 2004, end: 2011
  6. BYSTOLIC [Suspect]
     Active Substance: NEBIVOLOL HYDROCHLORIDE
     Indication: HYPERTENSION
     Dosage: 2.5 MG, UNKNOWN
     Route: 048
     Dates: start: 2019, end: 20190927
  7. PREDNISONE. [Concomitant]
     Active Substance: PREDNISONE
     Indication: HYPERSENSITIVITY
     Dosage: 10 DAY DOSE PACK AS NEEDED

REACTIONS (12)
  - Heart rate decreased [Unknown]
  - Fatigue [Recovering/Resolving]
  - Muscle spasms [Recovered/Resolved]
  - Liver injury [Recovered/Resolved]
  - Urticaria [Recovering/Resolving]
  - Apathy [Recovering/Resolving]
  - Adverse event [Unknown]
  - Dyspnoea [Recovering/Resolving]
  - Blood pressure diastolic decreased [Unknown]
  - Nausea [Recovering/Resolving]
  - Abdominal distension [Unknown]
  - Drug interaction [Unknown]

NARRATIVE: CASE EVENT DATE: 201202
